FAERS Safety Report 10014063 (Version 2)
Quarter: 2014Q1

REPORT INFORMATION
  Report Type: Spontaneous
  Country: JP (occurrence: JP)
  Receive Date: 20140317
  Receipt Date: 20140323
  Transmission Date: 20141002
  Serious: Yes (Hospitalization)
  Sender: FDA-Public Use
  Company Number: JP-009507513-1403JPN006349

PATIENT
  Age: 35 Year
  Sex: Female
  Weight: 40 kg

DRUGS (3)
  1. AMITRIPTYLINE HYDROCHLORIDE [Suspect]
     Dosage: 1450 MG, ONCE
     Route: 048
  2. ETIZOLAM [Suspect]
     Dosage: 18 MG, ONCE
     Route: 048
  3. TRIAZOLAM [Suspect]
     Dosage: 2.5 MG, ONCE
     Route: 048

REACTIONS (1)
  - Intentional overdose [Recovered/Resolved]
